FAERS Safety Report 4967184-8 (Version None)
Quarter: 2006Q2

REPORT INFORMATION
  Report Type: 
  Country: None (occurrence: None)
  Receive Date: 20060403
  Receipt Date: 20060320
  Transmission Date: 20061013
  Serious: Yes (Death, Other)
  Sender: FDA-Public Use
  Company Number: 2006021271

PATIENT
  Age: 47 Year
  Sex: Female

DRUGS (16)
  1. LINEZOLID TABLET (LINEZOLID) [Suspect]
     Indication: ENTEROCOCCAL INFECTION
     Dosage: 600 MG (1 IN 12 HR), ORAL
     Route: 048
  2. SERTRALINE [Suspect]
     Indication: ILL-DEFINED DISORDER
     Dosage: 10 MG
  3. ATENOLOL [Concomitant]
  4. BENZONATATE [Concomitant]
  5. CLOPIDOGREL (CLOPIDOGREL) [Concomitant]
  6. ERYTHROPOIETIN (ERYTHROPOIETIN) [Concomitant]
  7. FAMOTIDINE [Concomitant]
  8. FOSINOPRIL SODIUM [Concomitant]
  9. GABAPENTIN [Concomitant]
  10. INSULIN (INSULIN) [Concomitant]
  11. NATEGELINIDE (NATEGELINIDE) [Concomitant]
  12. PIOGLITAZONE HCL [Concomitant]
  13. SIMVASTATIN [Concomitant]
  14. VANCOMYCIN [Concomitant]
  15. CALCIUM (CALCIUM) [Concomitant]
  16. CLONAZEPAM [Concomitant]

REACTIONS (18)
  - ANOXIC ENCEPHALOPATHY [None]
  - APALLIC SYNDROME [None]
  - CARDIO-RESPIRATORY ARREST [None]
  - COMA [None]
  - CONFUSIONAL STATE [None]
  - COORDINATION ABNORMAL [None]
  - DELIRIUM [None]
  - DIALYSIS [None]
  - DIARRHOEA [None]
  - DRUG INTERACTION [None]
  - ENTEROCOCCAL INFECTION [None]
  - GANGRENE [None]
  - HYPERTENSION [None]
  - MYOCLONUS [None]
  - PYREXIA [None]
  - REFUSAL OF TREATMENT BY RELATIVE [None]
  - TACHYCARDIA [None]
  - THERAPY NON-RESPONDER [None]
